FAERS Safety Report 24904354 (Version 1)
Quarter: 2025Q1

REPORT INFORMATION
  Report Type: Spontaneous
  Country: US (occurrence: None)
  Receive Date: 20250129
  Receipt Date: 20250129
  Transmission Date: 20250408
  Serious: Yes (unspecified)
  Sender: FDA-CTU
  Company Number: None

PATIENT
  Age: 60 Year
  Sex: Female
  Weight: 84.4 kg

DRUGS (1)
  1. PACLITAXEL [Suspect]
     Active Substance: PACLITAXEL
     Indication: Ovarian cancer stage III
     Route: 042
     Dates: start: 20250127

REACTIONS (4)
  - Nausea [None]
  - Dysphagia [None]
  - Skin swelling [None]
  - Infusion related reaction [None]

NARRATIVE: CASE EVENT DATE: 20250127
